FAERS Safety Report 6884495-X (Version None)
Quarter: 2010Q3

REPORT INFORMATION
  Report Type: 
  Country: None (occurrence: None)
  Receive Date: 20100729
  Receipt Date: 20070712
  Transmission Date: 20110219
  Serious: Yes (Death, Hospitalization)
  Sender: FDA-Public Use
  Company Number: US-PFIZER INC-2007058267

PATIENT
  Sex: Male
  Weight: 74.8 kg

DRUGS (2)
  1. CELEBREX [Suspect]
     Indication: ARTHRITIS
     Dates: start: 20010101, end: 20021102
  2. CELEBREX [Suspect]
     Indication: BACK DISORDER

REACTIONS (1)
  - MYOCARDIAL INFARCTION [None]
